FAERS Safety Report 9174714 (Version 1)
Quarter: 2013Q1

REPORT INFORMATION
  Report Type: Spontaneous
  Country: US (occurrence: US)
  Receive Date: 20130320
  Receipt Date: 20130320
  Transmission Date: 20140127
  Serious: No
  Sender: FDA-Public Use
  Company Number: US-B.I. PHARMACEUTICALS,INC./RIDGEFIELD-2013-BI-06076BP

PATIENT
  Age: 80 None
  Sex: Male
  Weight: 86 kg

DRUGS (10)
  1. SPIRIVA [Suspect]
     Indication: CHRONIC OBSTRUCTIVE PULMONARY DISEASE
     Dosage: 18 MCG
     Route: 055
     Dates: start: 20130104, end: 20130125
  2. SPIRIVA [Suspect]
     Dosage: 18 MCG
     Route: 055
     Dates: start: 20130218
  3. SYNTHROID [Concomitant]
     Route: 048
  4. HYZAAR [Concomitant]
     Indication: HYPERTENSION
     Route: 048
  5. AMLODIPINE [Concomitant]
     Route: 048
  6. ASPIRIN [Concomitant]
     Route: 048
  7. TRIGLIDE [Concomitant]
     Route: 048
  8. POTASSIUM [Concomitant]
     Route: 048
  9. VITAMIN B [Concomitant]
     Route: 048
  10. MULTIVITAMIN [Concomitant]
     Route: 048

REACTIONS (4)
  - Pruritus generalised [Recovered/Resolved]
  - Rash generalised [Recovered/Resolved]
  - Product quality issue [Recovered/Resolved]
  - Product quality issue [Recovered/Resolved]
